FAERS Safety Report 8431512-1 (Version None)
Quarter: 2012Q2

REPORT INFORMATION
  Report Type: 
  Country: None (occurrence: None)
  Receive Date: 20120613
  Receipt Date: 20120601
  Transmission Date: 20120825
  Serious: Yes (Other)
  Sender: FDA-Public Use
  Company Number: US-JNJFOC-20120602044

PATIENT
  Age: 17 Year
  Sex: Male

DRUGS (2)
  1. METHOTREXATE [Concomitant]
     Indication: CROHN'S DISEASE
     Route: 065
  2. REMICADE [Suspect]
     Indication: CROHN'S DISEASE
     Route: 042

REACTIONS (1)
  - EPSTEIN-BARR VIRUS INFECTION [None]
